FAERS Safety Report 4597194-4 (Version None)
Quarter: 2005Q1

REPORT INFORMATION
  Report Type: 
  Country: None (occurrence: None)
  Receive Date: 20050301
  Receipt Date: 20050218
  Transmission Date: 20050727
  Serious: Yes (Hospitalization)
  Sender: FDA-Public Use
  Company Number: 6013220

PATIENT
  Age: 90 Year
  Sex: Female

DRUGS (7)
  1. CARDENSIEL 1.25 MG (1,25 MG, TABLET) (BISOPROLOL) [Suspect]
     Dosage: 1,25 MG (1,25 MG, 1 IN 1 D) ORAL
     Route: 048
     Dates: start: 20041116
  2. ALLOPURINOL [Suspect]
     Dosage: 200 MG (200 MG, 1 IN 1 D) ORAL
     Route: 048
  3. PREVISCAN (20 MG, TABLET) (FLUINDIONE) [Suspect]
     Dosage: 5 MG (1 D) ORAL
     Route: 048
     Dates: start: 20041116, end: 20041124
  4. ZOCOR [Concomitant]
  5. CORDARONE (200 MG, TABLET) (AMIODARONE HYDROCHLORIDE) [Concomitant]
  6. DIGOXINE NATIVELLE (0,25 MG, TABLET) (DIGOXIN) [Concomitant]
  7. LASILIX (20 MG, TABLET) (FUROSEMIDE) [Concomitant]

REACTIONS (9)
  - ARTHRALGIA [None]
  - CLOSED HEAD INJURY [None]
  - DRUG INTERACTION [None]
  - FALL [None]
  - HYPOPROTHROMBINAEMIA [None]
  - INTERNATIONAL NORMALISED RATIO INCREASED [None]
  - OVERDOSE [None]
  - PERIORBITAL HAEMATOMA [None]
  - RENAL FAILURE [None]
